FAERS Safety Report 7608029-7 (Version None)
Quarter: 2011Q3

REPORT INFORMATION
  Report Type: 
  Country: None (occurrence: None)
  Receive Date: 20110714
  Receipt Date: 20110706
  Transmission Date: 20111222
  Serious: Yes (Hospitalization)
  Sender: FDA-Public Use
  Company Number: US-JNJFOC-20110302873

PATIENT
  Sex: Male

DRUGS (4)
  1. INVEGA SUSTENNA [Suspect]
     Indication: SCHIZOPHRENIA
     Route: 030
     Dates: start: 20110208
  2. INVEGA [Suspect]
     Route: 048
  3. INVEGA SUSTENNA [Suspect]
     Route: 030
     Dates: start: 20110215
  4. INVEGA [Suspect]
     Indication: SCHIZOPHRENIA
     Route: 048

REACTIONS (8)
  - DRUG ADMINISTERED AT INAPPROPRIATE SITE [None]
  - PARANOIA [None]
  - INJECTION SITE CELLULITIS [None]
  - PAIN IN EXTREMITY [None]
  - INJECTION SITE ERYTHEMA [None]
  - PRODUCT QUALITY ISSUE [None]
  - REGRESSIVE BEHAVIOUR [None]
  - FATIGUE [None]
